FAERS Safety Report 12414288 (Version 1)
Quarter: 2016Q2

REPORT INFORMATION
  Report Type: Spontaneous
  Country: US (occurrence: US)
  Receive Date: 20160528
  Receipt Date: 20160528
  Transmission Date: 20160815
  Serious: No
  Sender: FDA-Public Use
  Company Number: PHEH2016US013188

PATIENT
  Age: 52 Year
  Sex: Male

DRUGS (1)
  1. VOTRIENT [Suspect]
     Active Substance: PAZOPANIB HYDROCHLORIDE
     Indication: METASTASES TO LYMPH NODES
     Dosage: 4 DF, QD
     Route: 048
     Dates: start: 20150720

REACTIONS (3)
  - Product use issue [Unknown]
  - Skin discolouration [Unknown]
  - Hair colour changes [Unknown]

NARRATIVE: CASE EVENT DATE: 20150720
